FAERS Safety Report 25825054 (Version 2)
Quarter: 2025Q4

REPORT INFORMATION
  Report Type: Other
  Country: US (occurrence: US)
  Receive Date: 20250919
  Receipt Date: 20251019
  Transmission Date: 20260118
  Serious: No
  Sender: TRAVERE THERAPEUTICS
  Company Number: US-TRAVERE-2025TVT01127

PATIENT
  Age: 50 Year
  Sex: Female

DRUGS (1)
  1. FILSPARI [Suspect]
     Active Substance: SPARSENTAN
     Indication: IgA nephropathy
     Route: 048

REACTIONS (4)
  - Pruritus [Recovering/Resolving]
  - Exposure to toxic agent [Recovering/Resolving]
  - Agitation [None]
  - Dyspnoea [Unknown]

NARRATIVE: CASE EVENT DATE: 20250629
